FAERS Safety Report 4514340-9 (Version None)
Quarter: 2004Q4

REPORT INFORMATION
  Report Type: 
  Country: None (occurrence: None)
  Receive Date: 20040928
  Receipt Date: 20040625
  Transmission Date: 20050328
  Serious: No
  Sender: FDA-Public Use
  Company Number: 04P-163-0266296-00

PATIENT
  Sex: Female
  Weight: 51.2565 kg

DRUGS (7)
  1. HUMIRA [Suspect]
     Dosage: 40 MG, SUBCUTANEOUS
     Route: 058
     Dates: start: 20040501
  2. METHOTREXATE SODIUM [Concomitant]
  3. TEMAZEPAM [Concomitant]
  4. BUCINDOLOL HYDROCHLORIDE [Concomitant]
  5. MULTI-VITAMINS [Concomitant]
  6. CALCIUM [Concomitant]
  7. ETIDRONATE DISODIUM [Concomitant]

REACTIONS (3)
  - ANXIETY [None]
  - HEADACHE [None]
  - SOMNOLENCE [None]
